FAERS Safety Report 9471751 (Version 1)
Quarter: 2013Q3

REPORT INFORMATION
  Report Type: Spontaneous
  Country: US (occurrence: US)
  Receive Date: 20130822
  Receipt Date: 20130822
  Transmission Date: 20140515
  Serious: Yes (Death)
  Sender: FDA-Public Use
  Company Number: US-GLAXOSMITHKLINE-A1038220A

PATIENT
  Sex: Male

DRUGS (14)
  1. ADVAIR [Suspect]
     Indication: CHRONIC OBSTRUCTIVE PULMONARY DISEASE
     Dosage: 1PUFF TWICE PER DAY
     Route: 055
     Dates: start: 2010
  2. SIMVASTATIN [Concomitant]
  3. AMIODARONE [Concomitant]
  4. PEPCID [Concomitant]
  5. METOPROLOL [Concomitant]
  6. LASIX [Concomitant]
  7. PRILOSEC [Concomitant]
  8. XARELTO [Concomitant]
  9. UNKNOWN [Concomitant]
  10. COMBIVENT [Concomitant]
  11. PREDNISONE [Concomitant]
  12. SPIRONOLACTONE [Concomitant]
  13. LEVAQUIN [Concomitant]
  14. VANCOMYCIN [Concomitant]

REACTIONS (6)
  - Death [Fatal]
  - Dyspnoea [Unknown]
  - Chest pain [Unknown]
  - Coronary artery bypass [Unknown]
  - Exposure to chemical pollution [Unknown]
  - Staphylococcal infection [Unknown]
